FAERS Safety Report 4906956-2 (Version None)
Quarter: 2006Q1

REPORT INFORMATION
  Report Type: 
  Country: None (occurrence: None)
  Receive Date: 20060207
  Receipt Date: 20060120
  Transmission Date: 20060701
  Serious: Yes (Hospitalization)
  Sender: FDA-Public Use
  Company Number: 6019981

PATIENT
  Age: 76 Year
  Sex: Male

DRUGS (2)
  1. CARDENSIEL (FILM-COATED TABLET) (BISOPROLOL FUMARATE) [Suspect]
     Indication: CONDUCTION DISORDER
     Dosage: ORAL
     Route: 048
     Dates: start: 20051118, end: 20051206
  2. AMIODARONE HCL [Suspect]
     Indication: CONDUCTION DISORDER
     Dosage: ORAL
     Route: 048
     Dates: start: 20051118, end: 20051122

REACTIONS (7)
  - ANAEMIA [None]
  - DERMATITIS EXFOLIATIVE [None]
  - EOSINOPHILIA [None]
  - INFLAMMATION [None]
  - PRURITUS [None]
  - RASH PUSTULAR [None]
  - RENAL FAILURE [None]
